FAERS Safety Report 14162177 (Version 1)
Quarter: 2017Q4

REPORT INFORMATION
  Report Type: Spontaneous
  Country: DE (occurrence: DE)
  Receive Date: 20171106
  Receipt Date: 20171106
  Transmission Date: 20180321
  Serious: Yes (Death, Life-Threatening)
  Sender: FDA-Public Use
  Company Number: DE-PURDUE PHARMA-GBR-2017-0050179

PATIENT

DRUGS (1)
  1. OXYCODONE HYDROCHLORIDE / NALOXONE HYDROCHLORIDE [Suspect]
     Active Substance: NALOXONE HYDROCHLORIDE\OXYCODONE HYDROCHLORIDE
     Indication: PRODUCT USED FOR UNKNOWN INDICATION
     Dosage: 5/2.5MG
     Route: 065
     Dates: start: 20170814

REACTIONS (4)
  - Product quality issue [Unknown]
  - Acute kidney injury [Unknown]
  - Sepsis [Fatal]
  - Endocarditis [Unknown]
